FAERS Safety Report 11456094 (Version 1)
Quarter: 2015Q3

REPORT INFORMATION
  Report Type: Spontaneous
  Country: NL (occurrence: NL)
  Receive Date: 20150903
  Receipt Date: 20150903
  Transmission Date: 20151125
  Serious: Yes (Hospitalization)
  Sender: FDA-Public Use
  Company Number: NL-ELI_LILLY_AND_COMPANY-NL201508008283

PATIENT
  Age: 33 Year
  Sex: Female
  Weight: 64 kg

DRUGS (3)
  1. CYMBALTA [Suspect]
     Active Substance: DULOXETINE HYDROCHLORIDE
     Indication: NEURALGIA
     Dosage: 30 MG, BID
     Route: 065
     Dates: start: 201212, end: 201412
  2. EPOPROSTENOL. [Concomitant]
     Active Substance: EPOPROSTENOL
     Dosage: 96 ML, WEEKLY (1/W)
     Route: 065
     Dates: start: 201003
  3. ADALAT [Concomitant]
     Active Substance: NIFEDIPINE
     Dosage: 30 MG, QD
     Route: 005
     Dates: start: 201003

REACTIONS (6)
  - Iron deficiency anaemia [Recovered/Resolved]
  - Paraesthesia [Recovered/Resolved]
  - Vaginal haemorrhage [Recovered/Resolved]
  - Rectal haemorrhage [Recovered/Resolved]
  - Drug withdrawal syndrome [Recovered/Resolved]
  - Off label use [Unknown]

NARRATIVE: CASE EVENT DATE: 201303
